FAERS Safety Report 20946870 (Version 1)
Quarter: 2022Q2

REPORT INFORMATION
  Report Type: Spontaneous
  Country: CN (occurrence: CN)
  Receive Date: 20220610
  Receipt Date: 20220610
  Transmission Date: 20220720
  Serious: Yes (Hospitalization)
  Sender: FDA-Public Use
  Company Number: None

PATIENT
  Age: 56 Year
  Sex: Female
  Weight: 59 kg

DRUGS (4)
  1. CYCLOPHOSPHAMIDE [Suspect]
     Active Substance: CYCLOPHOSPHAMIDE
     Indication: Breast cancer stage III
     Dosage: 950 MG, QD, 0.9% SODIUM CHLORIDE 100ML + CYCLOPHOSPHAMIDE 950MG
     Route: 042
     Dates: start: 20220517, end: 20220517
  2. SODIUM CHLORIDE [Suspect]
     Active Substance: SODIUM CHLORIDE
     Indication: Medication dilution
     Dosage: 100 ML, QD, 0.9% SODIUM CHLORIDE (100ML) + CYCLOPHOSPHAMIDE (950MG)
     Route: 042
     Dates: start: 20220517, end: 20220517
  3. ANHYDROUS DEXTROSE [Suspect]
     Active Substance: ANHYDROUS DEXTROSE
     Indication: Medication dilution
     Dosage: 250 ML, QD, 5% GLUCOSE (250ML) + PIRARUBICIN HYDROCHLORIDE (79MG)
     Route: 042
     Dates: start: 20220517, end: 20220517
  4. PIRARUBICIN HYDROCHLORIDE [Suspect]
     Active Substance: PIRARUBICIN HYDROCHLORIDE
     Indication: Breast cancer stage III
     Dosage: 79 MG, QD, 5% GLUCOSE (250ML) + PIRARUBICIN HYDROCHLORIDE (79MG)
     Route: 042
     Dates: start: 20220517, end: 20220517

REACTIONS (2)
  - White blood cell count decreased [Recovering/Resolving]
  - Neutrophil count decreased [Recovering/Resolving]

NARRATIVE: CASE EVENT DATE: 20220526
